FAERS Safety Report 5365298-4 (Version None)
Quarter: 2007Q2

REPORT INFORMATION
  Report Type: 
  Country: None (occurrence: None)
  Receive Date: 20070621
  Receipt Date: 20070611
  Transmission Date: 20071010
  Serious: Yes (Death, Life-Threatening, Hospitalization, Disabling, Other)
  Sender: FDA-Public Use
  Company Number: DE-AMGEN-UK160485

PATIENT
  Sex: Male

DRUGS (15)
  1. PALIFERMIN [Suspect]
     Indication: MUCOSAL INFLAMMATION
     Route: 042
     Dates: start: 20051007, end: 20051104
  2. CISPLATIN [Suspect]
     Dates: start: 20051010, end: 20051104
  3. RADIATION THERAPY [Suspect]
     Dates: start: 20051010, end: 20051123
  4. MANNITOL [Concomitant]
     Dates: start: 20051010, end: 20051104
  5. SALINE MIXTURE [Concomitant]
     Dates: start: 20051010, end: 20051104
  6. PARACETAMOL [Concomitant]
     Route: 054
     Dates: start: 20051123, end: 20051128
  7. PASPERTIN [Concomitant]
     Route: 048
     Dates: start: 20051123, end: 20051123
  8. DEXAMETHASONE 0.5MG TAB [Concomitant]
     Route: 042
     Dates: start: 20051010, end: 20051104
  9. ANZEMET [Concomitant]
     Route: 042
     Dates: start: 20051010, end: 20051104
  10. LASIX [Concomitant]
     Route: 048
     Dates: start: 20051110, end: 20051201
  11. AMPHO MORONAL [Concomitant]
     Route: 048
     Dates: start: 20051107, end: 20051201
  12. FENISTIL [Concomitant]
     Route: 048
     Dates: start: 20051201, end: 20051201
  13. NOVALGIN [Concomitant]
     Route: 048
     Dates: start: 20051103, end: 20051201
  14. TRAMADOL HCL [Concomitant]
     Route: 048
     Dates: start: 20051104, end: 20051201
  15. DURAGESIC-100 [Concomitant]
     Route: 062
     Dates: start: 20051115, end: 20051201

REACTIONS (9)
  - BLOOD CREATININE INCREASED [None]
  - C-REACTIVE PROTEIN INCREASED [None]
  - GUM NEOPLASM MALIGNANT STAGE UNSPECIFIED [None]
  - LEUKOPENIA [None]
  - MULTI-ORGAN FAILURE [None]
  - RED BLOOD CELL COUNT INCREASED [None]
  - SEPTIC SHOCK [None]
  - STAPHYLOCOCCAL SEPSIS [None]
  - WHITE BLOOD CELL COUNT INCREASED [None]
